FAERS Safety Report 9008502 (Version 2)
Quarter: 2013Q1

REPORT INFORMATION
  Report Type: Spontaneous
  Country: US (occurrence: None)
  Receive Date: 20121227
  Receipt Date: 20130122
  Transmission Date: 20140127
  Serious: Yes (Hospitalization)
  Sender: FDA-Public Use
  Company Number: JPI-P-027604

PATIENT
  Age: 48 Year
  Sex: Male
  Weight: 165.56 kg

DRUGS (1)
  1. XYREM (500 MILLIGRAM/MILLILITERS, SOLUTION) )SODIUM OXYBATE) ` [Suspect]
     Indication: NARCOLEPSY
     Route: 048
     Dates: start: 20121202

REACTIONS (3)
  - Road traffic accident [None]
  - Chest pain [None]
  - Laceration [None]
